FAERS Safety Report 8571143-6 (Version None)
Quarter: 2012Q3

REPORT INFORMATION
  Report Type: 
  Country: None (occurrence: None)
  Receive Date: 20120806
  Receipt Date: 20120801
  Transmission Date: 20120928
  Serious: No
  Sender: FDA-Public Use
  Company Number: US-PFIZER INC-2012188843

PATIENT
  Age: 49 Year
  Sex: Female

DRUGS (3)
  1. ENBREL [Suspect]
     Indication: PSORIATIC ARTHROPATHY
  2. ENBREL [Suspect]
     Indication: FIBROMYALGIA
     Dosage: 50 MG, QWK
     Dates: start: 20110706
  3. METHOTREXATE SODIUM [Suspect]
     Dosage: UNK
     Dates: end: 20110101

REACTIONS (1)
  - NAUSEA [None]
